FAERS Safety Report 7242547-9 (Version None)
Quarter: 2011Q1

REPORT INFORMATION
  Report Type: 
  Country: None (occurrence: None)
  Receive Date: 20110114
  Receipt Date: 20110105
  Transmission Date: 20110831
  Serious: Yes (Hospitalization)
  Sender: FDA-Public Use
  Company Number: AXC-2010-000363

PATIENT
  Age: 78 Year
  Sex: Female

DRUGS (5)
  1. ANPLAG (SARPOGRELATE HYDROCHLORIDE) TABLET [Suspect]
     Indication: ARTERIOSCLEROSIS OBLITERANS
     Dosage: 300 MG, QD, ORAL
     Route: 048
     Dates: start: 20091214, end: 20101001
  2. INTERFERON [Concomitant]
  3. OPALMON (LIMAPROST) [Concomitant]
  4. BEZATOL (BEZAFIBRATE) [Concomitant]
  5. URSODEOXYCHOLIC ACID) (URSODEOXYCHOLIC ACID) UNKNOWN [Suspect]
     Indication: PRODUCT USED FOR UNKNOWN INDICATION
     Dosage: ORAL
     Route: 048

REACTIONS (3)
  - HEPATITIS C [None]
  - HEPATIC FUNCTION ABNORMAL [None]
  - CONDITION AGGRAVATED [None]
